FAERS Safety Report 8833167 (Version 2)
Quarter: 2013Q1

REPORT INFORMATION
  Report Type: Spontaneous
  Country: NL (occurrence: NL)
  Receive Date: 20121010
  Receipt Date: 20130204
  Transmission Date: 20140127
  Serious: Yes (Hospitalization, Other)
  Sender: FDA-Public Use
  Company Number: PHHY2012NL089086

PATIENT
  Sex: Male

DRUGS (9)
  1. ZOMETA [Suspect]
     Indication: METASTASES TO BONE
     Dosage: 4 MG/ 100ML ONCE PER 28 DAYS
     Route: 042
     Dates: start: 20111018
  2. ZOMETA [Suspect]
     Dosage: 4 MG/ 100ML ONCE PER 28 DAYS
     Route: 042
     Dates: start: 20111130
  3. ZOMETA [Suspect]
     Dosage: 4 MG/ 100ML ONCE PER 28 DAYS
     Route: 042
     Dates: start: 20120515, end: 20120515
  4. VESICARE [Concomitant]
     Dosage: 10 MG, QD
     Dates: start: 20120820
  5. OXYNORM [Concomitant]
     Dosage: 10 MG, QID
     Dates: start: 20120820
  6. PANTOPRAZOLE [Concomitant]
     Dosage: 40 MG, QD
     Dates: start: 20120820
  7. METOCLOPRAMIDE [Concomitant]
     Dosage: 10 MG, TID
     Dates: start: 20120820
  8. FENTANYL [Concomitant]
     Dosage: 50 UG, ONCE PER 3 DAYS
     Dates: start: 20120820
  9. DEXAMETHASONE [Concomitant]
     Dosage: 4 MG, BID
     Dates: start: 20120820

REACTIONS (2)
  - General physical health deterioration [Unknown]
  - Bone pain [Unknown]
